FAERS Safety Report 6447361-X (Version None)
Quarter: 2009Q4

REPORT INFORMATION
  Report Type: 
  Country: None (occurrence: None)
  Receive Date: 20091119
  Receipt Date: 20091105
  Transmission Date: 20100525
  Serious: Yes (Hospitalization)
  Sender: FDA-Public Use
  Company Number: US-ELI_LILLY_AND_COMPANY-US200910002102

PATIENT
  Age: 15 Year
  Sex: Male
  Weight: 99.773 kg

DRUGS (9)
  1. STRATTERA [Suspect]
     Indication: OPPOSITIONAL DEFIANT DISORDER
     Dosage: 25 MG, DAILY (1/D)
     Route: 065
  2. PROZAC [Concomitant]
     Dosage: UNK, UNKNOWN
     Route: 065
  3. ADDERALL 10 [Concomitant]
  4. ABILIFY [Concomitant]
  5. LAMICTAL [Concomitant]
  6. METFORMIN HCL [Concomitant]
  7. TRAZODONE HCL [Concomitant]
  8. LISINOPRIL [Concomitant]
  9. FEXOFENADINE [Concomitant]

REACTIONS (2)
  - OFF LABEL USE [None]
  - OVERDOSE [None]
